FAERS Safety Report 21518797 (Version 1)
Quarter: 2022Q4

REPORT INFORMATION
  Report Type: Report from Study
  Country: US (occurrence: US)
  Receive Date: 20221028
  Receipt Date: 20221028
  Transmission Date: 20230112
  Serious: Yes (Death)
  Sender: FDA-Public Use
  Company Number: US-ABBVIE-4178011

PATIENT
  Sex: Male

DRUGS (1)
  1. VENCLEXTA [Suspect]
     Active Substance: VENETOCLAX
     Indication: Acute myeloid leukaemia
     Dosage: FOOD DAILY WITH D AND A FULL GLASS OF WATER - SWALLOW WHOLE, DO NOT CRUSH
     Route: 048
     Dates: start: 20220923, end: 20221021

REACTIONS (1)
  - Death [Fatal]
